FAERS Safety Report 10650110 (Version 2)
Quarter: 2015Q1

REPORT INFORMATION
  Report Type: Spontaneous
  Country: US (occurrence: US)
  Receive Date: 20141212
  Receipt Date: 20150104
  Transmission Date: 20150720
  Serious: No
  Sender: FDA-Public Use
  Company Number: US-GLAXOSMITHKLINE-US2014GSK034670

PATIENT
  Sex: Female

DRUGS (7)
  1. SYNTHROID [Concomitant]
     Active Substance: LEVOTHYROXINE SODIUM
  2. POTASSIUM PERMANGANATE [Concomitant]
     Active Substance: POTASSIUM PERMANGANATE
  3. BREO ELLIPTA [Suspect]
     Active Substance: FLUTICASONE FUROATE\VILANTEROL TRIFENATATE
     Indication: CHRONIC OBSTRUCTIVE PULMONARY DISEASE
     Dosage: 1 PUFF(S), QD
     Route: 055
  4. FUROSEMIDE. [Concomitant]
     Active Substance: FUROSEMIDE
  5. COUMADIN [Concomitant]
     Active Substance: WARFARIN SODIUM
  6. ACEBUTOLOL [Concomitant]
     Active Substance: ACEBUTOLOL
  7. DILTIAZEM [Concomitant]
     Active Substance: DILTIAZEM

REACTIONS (8)
  - Dysgeusia [Recovered/Resolved]
  - Thermal burn [Recovered/Resolved]
  - Drug effect increased [Unknown]
  - Product taste abnormal [Unknown]
  - Oral discomfort [Recovered/Resolved]
  - Product odour abnormal [Unknown]
  - Product quality issue [Unknown]
  - Discomfort [Unknown]
